FAERS Safety Report 18215752 (Version 1)
Quarter: 2020Q3

REPORT INFORMATION
  Report Type: Spontaneous
  Country: TW (occurrence: TW)
  Receive Date: 20200831
  Receipt Date: 20200831
  Transmission Date: 20201103
  Serious: Yes (Death, Other)
  Sender: FDA-Public Use
  Company Number: TW-AMGEN-TWNSP2020140333

PATIENT
  Age: 55 Year
  Sex: Female

DRUGS (10)
  1. ARAVA [Concomitant]
     Active Substance: LEFLUNOMIDE
     Dosage: 1 DOSAGE FORM, QD
     Route: 048
  2. RASITOL [FUROSEMIDE] [Concomitant]
     Dosage: 0.5 DOSAGE FORM, QD
     Route: 048
  3. STROCAIN [OXETACAINE] [Concomitant]
     Dosage: 1 DOSAGE FORM, BID
     Route: 048
  4. ARCOXIA [Concomitant]
     Active Substance: ETORICOXIB
     Dosage: 1 DOSAGE FORM, QD
  5. EURODIN [ESTAZOLAM] [Concomitant]
     Dosage: 1 DOSAGE FORM
     Route: 048
  6. ASPARA?CA [Concomitant]
     Active Substance: CALCIUM ASPARTATE
     Dosage: 1 DOSAGE FORM, BID
     Route: 048
  7. COMPESOLON [Concomitant]
     Active Substance: PREDNISOLONE
     Dosage: 1 DOSAGE FORM, QD
     Route: 048
  8. ENBREL [Suspect]
     Active Substance: ETANERCEPT
     Indication: RHEUMATOID ARTHRITIS
     Dosage: 50 MILLIGRAM, QWK
     Route: 058
     Dates: start: 20161206
  9. PLAQUENIL [Concomitant]
     Active Substance: HYDROXYCHLOROQUINE SULFATE
     Dosage: 1 DOSAGE FORM, BID
     Route: 048
  10. PARAMOL [PARACETAMOL] [Concomitant]
     Dosage: 1 DOSAGE FORM, BID
     Route: 048

REACTIONS (3)
  - Staphylococcal infection [Unknown]
  - Death [Fatal]
  - Malaise [Unknown]

NARRATIVE: CASE EVENT DATE: 20200819
